FAERS Safety Report 4685785-1 (Version None)
Quarter: 2005Q2

REPORT INFORMATION
  Report Type: 
  Country: None (occurrence: None)
  Receive Date: 20050607
  Receipt Date: 20050607
  Transmission Date: 20051028
  Serious: No
  Sender: FDA-Public Use
  Company Number: None

PATIENT
  Age: 78 Year
  Sex: Female
  Weight: 73.9363 kg

DRUGS (1)
  1. LEVAQUIN [Suspect]
     Indication: PNEUMONIA
     Dosage: IV - TWICE ONLY
     Route: 042
     Dates: start: 20050407, end: 20050408

REACTIONS (11)
  - ARTHRALGIA [None]
  - ASTHENIA [None]
  - FLUSHING [None]
  - HYPOAESTHESIA [None]
  - INFUSION SITE BURNING [None]
  - MYALGIA [None]
  - PAIN [None]
  - PARAESTHESIA [None]
  - PHOTOSENSITIVITY REACTION [None]
  - TENDON DISORDER [None]
  - URTICARIA [None]
